FAERS Safety Report 20455359 (Version 34)
Quarter: 2023Q1

REPORT INFORMATION
  Report Type: Spontaneous
  Country: GB (occurrence: GB)
  Receive Date: 20220210
  Receipt Date: 20230106
  Transmission Date: 20230418
  Serious: Yes (Life-Threatening, Hospitalization, Disabling, Other)
  Sender: FDA-Public Use
  Company Number: None

PATIENT
  Age: 56 Year
  Sex: Female
  Weight: 80 kg

DRUGS (15)
  1. LANSOPRAZOLE [Interacting]
     Active Substance: LANSOPRAZOLE
     Indication: Reflux laryngitis
     Dosage: UNK
     Route: 065
     Dates: end: 20211204
  2. LANSOPRAZOLE [Interacting]
     Active Substance: LANSOPRAZOLE
     Indication: Pruritus
     Dosage: UNK
     Route: 065
  3. TRIMETHOPRIM [Interacting]
     Active Substance: TRIMETHOPRIM
     Indication: Urinary tract infection
     Dosage: 200 MILLIGRAM, QD
     Route: 048
     Dates: start: 20190118, end: 20190120
  4. TRIMETHOPRIM [Interacting]
     Active Substance: TRIMETHOPRIM
     Dosage: 400 MILLIGRAM, QD, ONCE A DAY/ 400 MILLIGRAM, ONCE A DAY
     Route: 048
     Dates: start: 20190118, end: 20190120
  5. TRIMETHOPRIM [Interacting]
     Active Substance: TRIMETHOPRIM
     Dosage: 1200 MILLIGRAM, QD
     Route: 065
  6. TRIMETHOPRIM [Interacting]
     Active Substance: TRIMETHOPRIM
     Dosage: 200 MILLIGRAM, QD (200 MILLIGRAM, ONCE A DAY)
     Route: 048
  7. TRIMETHOPRIM [Interacting]
     Active Substance: TRIMETHOPRIM
     Dosage: 1200 MILLIGRAM, QD
     Route: 048
     Dates: start: 20190118
  8. DOMPERIDONE [Interacting]
     Active Substance: DOMPERIDONE
     Indication: Product used for unknown indication
     Dosage: UNK
     Route: 048
  9. OMEPRAZOLE [Interacting]
     Active Substance: OMEPRAZOLE
     Indication: Reflux laryngitis
     Dosage: 20 MILLIGRAM, QD
     Route: 048
     Dates: start: 20190118, end: 20190120
  10. OMEPRAZOLE [Interacting]
     Active Substance: OMEPRAZOLE
     Indication: Gastrooesophageal reflux disease
     Dosage: 200 MILLIGRAM, QD
     Route: 048
     Dates: start: 20190118, end: 20190120
  11. SOLIFENACIN [Interacting]
     Active Substance: SOLIFENACIN
     Indication: Product used for unknown indication
     Dosage: UNK
     Route: 048
  12. SOLIFENACIN [Interacting]
     Active Substance: SOLIFENACIN
     Dosage: 82 DOSAGE FORM
     Route: 048
  13. MODERNA COVID-19 VACCINE [Suspect]
     Active Substance: ELASOMERAN
     Indication: COVID-19 prophylaxis
     Dosage: 1 DF
     Route: 065
     Dates: start: 20211204, end: 20211204
  14. DULOXETINE [Concomitant]
     Active Substance: DULOXETINE
     Indication: Product used for unknown indication
     Dosage: UNK UNK, UNKNOWN FREQ
     Route: 065
  15. BECLOMETHASONE [Concomitant]
     Active Substance: BECLOMETHASONE
     Indication: Product used for unknown indication
     Dosage: UNK UNK, UNKNOWN FREQ
     Route: 065
     Dates: end: 20190102

REACTIONS (24)
  - Dementia [Unknown]
  - Blood potassium decreased [Unknown]
  - Diarrhoea [Recovered/Resolved]
  - Genital pain [Recovered/Resolved]
  - Irritable bowel syndrome [Unknown]
  - Abdominal pain upper [Recovering/Resolving]
  - Oral pain [Recovering/Resolving]
  - Condition aggravated [Unknown]
  - Feeling abnormal [Unknown]
  - Contusion [Not Recovered/Not Resolved]
  - Nightmare [Not Recovered/Not Resolved]
  - Blood potassium decreased [Unknown]
  - Food poisoning [Not Recovered/Not Resolved]
  - Genital ulceration [Recovered/Resolved]
  - Mucosal inflammation [Recovered/Resolved]
  - Gastrointestinal pain [Not Recovered/Not Resolved]
  - Drug interaction [Not Recovered/Not Resolved]
  - Malaise [Unknown]
  - Illness [Recovering/Resolving]
  - Vomiting [Unknown]
  - Abdominal pain [Recovered/Resolved]
  - Peripheral swelling [Unknown]
  - Diarrhoea [Recovered/Resolved]
  - Blood sodium decreased [Unknown]

NARRATIVE: CASE EVENT DATE: 20190121
